FAERS Safety Report 15325103 (Version 1)
Quarter: 2018Q3

REPORT INFORMATION
  Report Type: Spontaneous
  Country: JP (occurrence: JP)
  Receive Date: 20180828
  Receipt Date: 20180828
  Transmission Date: 20181010
  Serious: Yes (Other)
  Sender: FDA-Public Use
  Company Number: JP-CONCORDIA PHARMACEUTICALS INC.-E2B_00016421

PATIENT
  Age: 28 Year
  Sex: Female

DRUGS (1)
  1. ZONISAMIDE. [Suspect]
     Active Substance: ZONISAMIDE
     Indication: PRODUCT USED FOR UNKNOWN INDICATION
     Route: 048
     Dates: start: 201612, end: 201701

REACTIONS (1)
  - Drug reaction with eosinophilia and systemic symptoms [Unknown]
